FAERS Safety Report 23459666 (Version 1)
Quarter: 2024Q1

REPORT INFORMATION
  Report Type: Spontaneous
  Country: US (occurrence: US)
  Receive Date: 20240131
  Receipt Date: 20240131
  Transmission Date: 20240410
  Serious: No
  Sender: FDA-Public Use
  Company Number: US-CSLP-61312834979-V13540498-2

PATIENT
  Age: 21 Year
  Sex: Female

DRUGS (4)
  1. ANTICOAGULANT SODIUM CITRATE [Suspect]
     Active Substance: SODIUM CITRATE
     Indication: Anticoagulant therapy
     Route: 050
     Dates: start: 20240122, end: 20240122
  2. PROZAC [Concomitant]
     Active Substance: FLUOXETINE HYDROCHLORIDE
     Indication: Anxiety
     Dosage: DAILY
  3. NEXPLANON [Concomitant]
     Active Substance: ETONOGESTREL
     Indication: Contraception
     Dosage: CONTINUOUS
  4. SALINE [Concomitant]
     Active Substance: SODIUM CHLORIDE
     Indication: Product used for unknown indication
     Dates: start: 20240122, end: 20240122

REACTIONS (13)
  - Hyperhidrosis [Recovered/Resolved]
  - Dysgeusia [Recovered/Resolved]
  - Feeling hot [Recovered/Resolved]
  - Abdominal pain [Recovered/Resolved]
  - Dyspnoea [Recovered/Resolved]
  - Paraesthesia [Recovered/Resolved]
  - Anxiety [Recovered/Resolved]
  - Restlessness [Recovered/Resolved]
  - Muscle spasms [Recovered/Resolved]
  - Pain [Recovered/Resolved]
  - Movement disorder [Recovered/Resolved]
  - Hypoaesthesia [Recovered/Resolved]
  - Presyncope [Recovered/Resolved]

NARRATIVE: CASE EVENT DATE: 20240122
